FAERS Safety Report 21244390 (Version 2)
Quarter: 2022Q3

REPORT INFORMATION
  Report Type: Spontaneous
  Country: JP (occurrence: JP)
  Receive Date: 20220823
  Receipt Date: 20220906
  Transmission Date: 20221027
  Serious: Yes (Other)
  Sender: FDA-Public Use
  Company Number: JP-TEVA-2022-JP-2066986

PATIENT
  Age: 46 Year
  Sex: Female
  Weight: 57.9 kg

DRUGS (9)
  1. HYDROCORTISONE SODIUM SUCCINATE [Suspect]
     Active Substance: HYDROCORTISONE SODIUM SUCCINATE
     Indication: Paralysis recurrent laryngeal nerve
     Dosage: 300 MILLIGRAM DAILY;
     Route: 050
  2. HYDROCORTISONE SODIUM SUCCINATE [Suspect]
     Active Substance: HYDROCORTISONE SODIUM SUCCINATE
     Dosage: 200 MILLIGRAM DAILY;
     Route: 050
  3. HYDROCORTISONE SODIUM SUCCINATE [Suspect]
     Active Substance: HYDROCORTISONE SODIUM SUCCINATE
     Dosage: 100 MILLIGRAM DAILY;
     Route: 050
  4. PREDNISOLONE [Suspect]
     Active Substance: PREDNISOLONE
     Indication: Paralysis recurrent laryngeal nerve
     Dosage: 30 MILLIGRAM DAILY;
     Route: 048
  5. PREDNISOLONE [Suspect]
     Active Substance: PREDNISOLONE
     Dosage: 20 MILLIGRAM DAILY;
     Route: 048
  6. PREDNISOLONE [Suspect]
     Active Substance: PREDNISOLONE
     Dosage: 10 MILLIGRAM DAILY;
     Route: 048
  7. PREDNISOLONE [Suspect]
     Active Substance: PREDNISOLONE
     Dosage: 5 MILLIGRAM DAILY;
     Route: 048
  8. GARENOXACIN [Suspect]
     Active Substance: GARENOXACIN
     Indication: Lactobacillus infection
     Dosage: 400 MILLIGRAM DAILY;
     Route: 048
  9. GARENOXACIN [Suspect]
     Active Substance: GARENOXACIN
     Indication: Urinary tract infection

REACTIONS (3)
  - Lactobacillus infection [Recovering/Resolving]
  - Urinary tract infection [Recovering/Resolving]
  - Drug ineffective [Unknown]
